FAERS Safety Report 11240813 (Version 1)
Quarter: 2015Q3

REPORT INFORMATION
  Report Type: Spontaneous
  Country: US (occurrence: US)
  Receive Date: 20150706
  Receipt Date: 20150706
  Transmission Date: 20151125
  Serious: Yes (Hospitalization, Other)
  Sender: FDA-Public Use
  Company Number: US-PFIZER INC-2015220434

PATIENT
  Age: 76 Year
  Sex: Female
  Weight: 48 kg

DRUGS (6)
  1. LYRICA [Suspect]
     Active Substance: PREGABALIN
     Indication: SPINAL COLUMN STENOSIS
  2. NORCO [Concomitant]
     Active Substance: ACETAMINOPHEN\HYDROCODONE BITARTRATE
     Dosage: UNK
  3. SOMA [Concomitant]
     Active Substance: CARISOPRODOL
  4. LYRICA [Suspect]
     Active Substance: PREGABALIN
     Indication: NEURALGIA
     Dosage: 200 MG, 2X/DAY
     Route: 048
  5. FENTANYL PATCHES [Concomitant]
     Active Substance: FENTANYL
     Dosage: UNK
  6. LYRICA [Suspect]
     Active Substance: PREGABALIN
     Indication: BACK DISORDER

REACTIONS (6)
  - Pain in extremity [Unknown]
  - Malaise [Unknown]
  - Lower limb fracture [Unknown]
  - Influenza [Unknown]
  - Intervertebral disc protrusion [Unknown]
  - Back disorder [Unknown]

NARRATIVE: CASE EVENT DATE: 2014
